FAERS Safety Report 9985055 (Version 2)
Quarter: 2014Q2

REPORT INFORMATION
  Report Type: Report from Study
  Country: JP (occurrence: JP)
  Receive Date: 20140307
  Receipt Date: 20140501
  Transmission Date: 20141212
  Serious: Yes (Hospitalization, Other)
  Sender: FDA-Public Use
  Company Number: JP-SA-2014SA027588

PATIENT
  Age: 54 Year
  Sex: Female
  Weight: 67 kg

DRUGS (14)
  1. THYMOGLOBULINE [Suspect]
     Indication: APLASTIC ANAEMIA
     Route: 042
     Dates: start: 20130730, end: 20130803
  2. NEORAL [Concomitant]
     Indication: APLASTIC ANAEMIA
     Dates: start: 20130410
  3. PREDONINE [Concomitant]
     Indication: APLASTIC ANAEMIA
     Dates: start: 20130427, end: 20131017
  4. TAKEPRON OD [Concomitant]
     Indication: GASTROOESOPHAGEAL REFLUX DISEASE
     Dates: start: 20130327
  5. ASPARA POTASSIUM [Concomitant]
     Indication: HYPOKALAEMIA
     Dates: start: 20130403, end: 20140219
  6. VALTREX [Concomitant]
     Indication: PROPHYLAXIS
     Dates: start: 20130413, end: 20131204
  7. ALOSENN [Concomitant]
     Indication: CONSTIPATION
     Dates: start: 20130414, end: 20131010
  8. BAKTAR [Concomitant]
     Indication: PROPHYLAXIS
     Dates: start: 20130417, end: 20131204
  9. ACTONEL [Concomitant]
     Indication: PROPHYLAXIS
     Dates: start: 20130507, end: 20131031
  10. ZOLPIDEM TARTRATE [Concomitant]
     Indication: INSOMNIA
     Dates: start: 20130628, end: 20140219
  11. ALLEGRA [Concomitant]
     Indication: PROPHYLAXIS
     Route: 048
     Dates: start: 20130730, end: 20130803
  12. CALONAL [Concomitant]
     Indication: PROPHYLAXIS
     Dates: start: 20130730, end: 20130803
  13. SOL-MELCORT [Concomitant]
     Indication: PROPHYLAXIS
     Dates: start: 20130731, end: 20130803
  14. SAXIZON [Concomitant]
     Indication: PROPHYLAXIS
     Dates: start: 20130710, end: 20130809

REACTIONS (7)
  - Hypogammaglobulinaemia [Recovered/Resolved]
  - Febrile neutropenia [Recovering/Resolving]
  - Cytomegalovirus infection [Recovering/Resolving]
  - Cytomegalovirus infection [Recovering/Resolving]
  - Oral candidiasis [Recovering/Resolving]
  - Neutrophil count decreased [Recovered/Resolved]
  - Lymphocyte count decreased [Recovered/Resolved]
